FAERS Safety Report 24267173 (Version 1)
Quarter: 2024Q3

REPORT INFORMATION
  Report Type: Spontaneous
  Country: SK (occurrence: SK)
  Receive Date: 20240830
  Receipt Date: 20240830
  Transmission Date: 20241017
  Serious: Yes (Hospitalization, Other)
  Sender: SANDOZ
  Company Number: SK-EMA-DD-20190318-sahu_k-131904

PATIENT
  Age: 29 Year
  Sex: Male

DRUGS (9)
  1. ACITRETIN [Suspect]
     Active Substance: ACITRETIN
     Indication: Psoriasis
     Dosage: UNKNOWN (NOS)
     Route: 065
  2. CYCLOSPORINE [Suspect]
     Active Substance: CYCLOSPORINE
     Indication: Psoriasis
     Route: 065
  3. ETANERCEPT [Suspect]
     Active Substance: ETANERCEPT
     Indication: Psoriasis
     Dosage: UNK
     Route: 065
  4. EFALIZUMAB [Suspect]
     Active Substance: EFALIZUMAB
     Indication: Psoriasis
     Dosage: UNK
     Route: 065
  5. INFLIXIMAB [Suspect]
     Active Substance: INFLIXIMAB
     Indication: Psoriasis
     Dosage: DOSAGE FORM: LYOPHILIZED POWDER
     Route: 042
  6. METHOTREXATE [Suspect]
     Active Substance: METHOTREXATE
     Dosage: 5 MG/DOSAGE FORM: UNSPECIFIED
     Route: 065
  7. METHOTREXATE [Suspect]
     Active Substance: METHOTREXATE
     Indication: Psoriasis
     Dosage: DOSAGE FORM: UNSPECIFIED/UNKNOWN (NOS)
     Route: 065
  8. METHOTREXATE [Suspect]
     Active Substance: METHOTREXATE
     Dosage: 7.5 MG, QW
     Route: 065
  9. METHYLPREDNISOLONE [Suspect]
     Active Substance: METHYLPREDNISOLONE
     Indication: Psoriasis
     Dosage: 16 MG, QD
     Route: 048

REACTIONS (14)
  - Cardiac failure acute [Unknown]
  - Asthenia [Unknown]
  - Psoriasis [Unknown]
  - Mobility decreased [Unknown]
  - Cardiomyopathy [Unknown]
  - Progressive multifocal leukoencephalopathy [Recovering/Resolving]
  - Body temperature increased [Unknown]
  - Condition aggravated [Unknown]
  - Erythrodermic psoriasis [Unknown]
  - Renal failure [Not Recovered/Not Resolved]
  - Dyspnoea [Unknown]
  - Cachexia [Recovering/Resolving]
  - Hydrothorax [Unknown]
  - Therapeutic response decreased [Recovering/Resolving]

NARRATIVE: CASE EVENT DATE: 20060701
